FAERS Safety Report 15782775 (Version 2)
Quarter: 2019Q1

REPORT INFORMATION
  Report Type: Spontaneous
  Country: US (occurrence: US)
  Receive Date: 20190102
  Receipt Date: 20190117
  Transmission Date: 20190417
  Serious: Yes (Hospitalization)
  Sender: FDA-Public Use
  Company Number: US-PFIZER INC-2018533482

PATIENT
  Age: 79 Year
  Sex: Male
  Weight: 108.86 kg

DRUGS (1)
  1. LYRICA [Suspect]
     Active Substance: PREGABALIN
     Indication: NEUROPATHY PERIPHERAL
     Dosage: 75 MG, 3X/DAY
     Route: 048
     Dates: end: 20181221

REACTIONS (6)
  - Weight decreased [Unknown]
  - Gait disturbance [Unknown]
  - Hypernatraemia [Unknown]
  - Blood sodium decreased [Recovered/Resolved with Sequelae]
  - Dysgeusia [Unknown]
  - Asthenia [Unknown]

NARRATIVE: CASE EVENT DATE: 201812
